FAERS Safety Report 16781997 (Version 1)
Quarter: 2019Q3

REPORT INFORMATION
  Report Type: Spontaneous
  Country: CA (occurrence: CA)
  Receive Date: 20190906
  Receipt Date: 20190906
  Transmission Date: 20191005
  Serious: Yes (Other)
  Sender: FDA-Public Use
  Company Number: CA-BAYER-2019-161558

PATIENT
  Sex: Female

DRUGS (8)
  1. FLAGYL [Suspect]
     Active Substance: METRONIDAZOLE\METRONIDAZOLE HYDROCHLORIDE
     Dosage: UNK
     Dates: start: 20180521
  2. IMURAN [Concomitant]
     Active Substance: AZATHIOPRINE
     Dosage: UNK
     Route: 065
  3. CIPRO [Suspect]
     Active Substance: CIPROFLOXACIN HYDROCHLORIDE
     Dosage: UNK
     Dates: start: 20180521
  4. METHOTREXATE. [Suspect]
     Active Substance: METHOTREXATE
     Dosage: 12.5 DF, OW
     Route: 048
     Dates: start: 20190714
  5. HUMIRA [Concomitant]
     Active Substance: ADALIMUMAB
     Dosage: 80 MG, OW
     Route: 058
     Dates: start: 20190211, end: 20190731
  6. PREDNISONE. [Concomitant]
     Active Substance: PREDNISONE
     Dosage: 20 MG, QD
     Route: 065
  7. AZATHIOPRINE. [Concomitant]
     Active Substance: AZATHIOPRINE
     Dosage: UNK
     Route: 065
  8. TRIAMCINOLONE ACETONIDE (GLUCOCORTICOID) [Concomitant]
     Dosage: UNK

REACTIONS (1)
  - Anal fistula [None]

NARRATIVE: CASE EVENT DATE: 201908
